FAERS Safety Report 5396832-6 (Version None)
Quarter: 2007Q3

REPORT INFORMATION
  Report Type: 
  Country: None (occurrence: None)
  Receive Date: 20070725
  Receipt Date: 20060818
  Transmission Date: 20080115
  Serious: No
  Sender: FDA-Public Use
  Company Number: US-AMGEN-KDL191236

PATIENT
  Sex: Male
  Weight: 155.3 kg

DRUGS (6)
  1. PROCRIT [Suspect]
     Indication: RENAL FAILURE CHRONIC
     Route: 058
     Dates: start: 20060809
  2. DIOVAN [Concomitant]
     Route: 048
  3. NORVASC [Concomitant]
     Route: 048
  4. FLOVENT [Concomitant]
  5. MOTRIN [Concomitant]
     Route: 048
  6. PEPCID [Concomitant]
     Route: 048

REACTIONS (1)
  - POLLAKIURIA [None]
